FAERS Safety Report 5141382-5 (Version None)
Quarter: 2006Q4

REPORT INFORMATION
  Report Type: 
  Country: None (occurrence: None)
  Receive Date: 20061101
  Receipt Date: 20061030
  Transmission Date: 20070319
  Serious: Yes (Hospitalization)
  Sender: FDA-Public Use
  Company Number: US-GLAXOSMITHKLINE-A0625473A

PATIENT
  Age: 84 Year
  Sex: Male

DRUGS (12)
  1. DYAZIDE [Suspect]
     Indication: HYPERTENSION
     Dosage: 1MG PER DAY
     Route: 048
     Dates: start: 19990101, end: 20060318
  2. INVESTIGATIONAL DRUG [Suspect]
     Indication: MACULAR DEGENERATION
     Dates: start: 20051024
  3. DILTIAZEM HCL [Concomitant]
     Indication: HYPERTENSION
     Dates: start: 20040101, end: 20060318
  4. PROPAFENONE HCL [Concomitant]
     Indication: ARRHYTHMIA
     Dates: start: 19990101
  5. GLYBURIDE [Concomitant]
     Indication: DIABETES MELLITUS
     Dates: start: 19980101, end: 20060322
  6. BENAZAPRIL [Concomitant]
     Indication: HYPERTENSION
     Dates: start: 20051130
  7. FLUVASTATIN [Concomitant]
     Indication: HYPERCHOLESTEROLAEMIA
     Dates: start: 20050101
  8. WARFARIN SODIUM [Concomitant]
     Indication: PROPHYLAXIS
     Dates: start: 20060101, end: 20060318
  9. ATENOLOL [Concomitant]
     Indication: HYPERTENSION
     Dates: start: 19990101, end: 20060318
  10. CLONAZEPAM [Concomitant]
     Indication: PAIN IN EXTREMITY
     Dates: start: 20030101
  11. OCUVITE [Concomitant]
     Indication: VITAMIN SUPPLEMENTATION
     Dates: start: 20050101
  12. AVANDIA [Concomitant]
     Indication: DIABETES MELLITUS
     Dates: start: 20030101, end: 20060318

REACTIONS (5)
  - ATRIAL FIBRILLATION [None]
  - BRADYCARDIA [None]
  - DIZZINESS [None]
  - PNEUMONIA [None]
  - RENAL FAILURE ACUTE [None]
